FAERS Safety Report 9235558 (Version 3)
Quarter: 2013Q4

REPORT INFORMATION
  Report Type: Spontaneous
  Country: US (occurrence: None)
  Receive Date: 20121031
  Receipt Date: 20131226
  Transmission Date: 20140711
  Serious: Yes (Other)
  Sender: FDA-Public Use
  Company Number: PHEH2012US016822

PATIENT
  Sex: Male
  Weight: 140.5 kg

DRUGS (1)
  1. GILENYA (FTY) CAPSULE, 0.5MG [Suspect]
     Route: 048

REACTIONS (4)
  - Influenza like illness [None]
  - Fatigue [None]
  - Malaise [None]
  - Bradycardia [None]
